FAERS Safety Report 4914068-7 (Version None)
Quarter: 2006Q1

REPORT INFORMATION
  Report Type: 
  Country: None (occurrence: None)
  Receive Date: 20060213
  Receipt Date: 20060201
  Transmission Date: 20060701
  Serious: Yes (Other)
  Sender: FDA-Public Use
  Company Number: 2006017112

PATIENT
  Age: 45 Year
  Sex: Male
  Weight: 64 kg

DRUGS (4)
  1. METHYLPREDNISOLONE SODIUM SUCCINATE [Suspect]
     Indication: COLITIS ULCERATIVE
     Dosage: 500 MG, INTRAVENOUS
     Route: 042
  2. MESALAMINE [Concomitant]
  3. OMEPRAZOLE [Concomitant]
  4. PREDNISOLONE [Concomitant]

REACTIONS (11)
  - ABDOMINAL PAIN UPPER [None]
  - ABDOMINAL TENDERNESS [None]
  - ABSCESS [None]
  - ATROPHY [None]
  - COLITIS ULCERATIVE [None]
  - CONDITION AGGRAVATED [None]
  - GASTRIC DISORDER [None]
  - HERPES ZOSTER [None]
  - LUNG ABSCESS [None]
  - PSEUDOPOLYPOSIS [None]
  - RED BLOOD CELL SEDIMENTATION RATE INCREASED [None]
